FAERS Safety Report 11118267 (Version 1)
Quarter: 2015Q2

REPORT INFORMATION
  Report Type: Report from Study
  Country: FR (occurrence: FR)
  Receive Date: 20150518
  Receipt Date: 20150518
  Transmission Date: 20150821
  Serious: Yes (Hospitalization)
  Sender: FDA-Public Use
  Company Number: FR-GLAXOSMITHKLINE-FR2015GSK067253

PATIENT
  Age: 60 Year
  Sex: Male

DRUGS (6)
  1. ASPIRINE [Concomitant]
     Active Substance: ASPIRIN
  2. ATENOLOL. [Concomitant]
     Active Substance: ATENOLOL
  3. CLOPIDOGREL [Concomitant]
     Active Substance: CLOPIDOGREL BISULFATE
  4. OMEGA-3-ACID ETHYL ESTERS. [Suspect]
     Active Substance: OMEGA-3-ACID ETHYL ESTERS
     Indication: ISCHAEMIC HEART DISEASE PROPHYLAXIS
     Dosage: UNK
     Dates: start: 20061002, end: 20121006
  5. RAMIPRIL. [Concomitant]
     Active Substance: RAMIPRIL
  6. PRAVASTATIN [Concomitant]
     Active Substance: PRAVASTATIN\PRAVASTATIN SODIUM

REACTIONS (1)
  - Rheumatic disorder [Unknown]

NARRATIVE: CASE EVENT DATE: 20090428
